FAERS Safety Report 4661261-7 (Version None)
Quarter: 2005Q2

REPORT INFORMATION
  Report Type: 
  Country: None (occurrence: None)
  Receive Date: 20050511
  Receipt Date: 20050428
  Transmission Date: 20051028
  Serious: Yes (Hospitalization)
  Sender: FDA-Public Use
  Company Number: JP-2005-006656

PATIENT
  Age: 14 Year
  Sex: Female
  Weight: 41 kg

DRUGS (1)
  1. BETASERON [Suspect]
     Indication: MULTIPLE SCLEROSIS
     Dosage: SUBCUTANEOUS
     Route: 058

REACTIONS (3)
  - MULTIPLE SCLEROSIS RELAPSE [None]
  - NEPHRITIS [None]
  - PHARYNGOLARYNGEAL PAIN [None]
